FAERS Safety Report 18063614 (Version 3)
Quarter: 2020Q4

REPORT INFORMATION
  Report Type: Report from Study
  Country: US (occurrence: US)
  Receive Date: 20200724
  Receipt Date: 20201027
  Transmission Date: 20210113
  Serious: Yes (Other)
  Sender: FDA-Public Use
  Company Number: NVSC2020US207656

PATIENT
  Sex: Male

DRUGS (1)
  1. GILENYA [Suspect]
     Active Substance: FINGOLIMOD HYDROCHLORIDE
     Indication: MULTIPLE SCLEROSIS
     Dosage: 0.5 MG QD
     Route: 048

REACTIONS (4)
  - Therapeutic response unexpected [Unknown]
  - Hypoaesthesia [Unknown]
  - Paralysis [Unknown]
  - Paraesthesia [Unknown]
